FAERS Safety Report 6013844-X (Version None)
Quarter: 2008Q4

REPORT INFORMATION
  Report Type: 
  Country: None (occurrence: None)
  Receive Date: 20081218
  Receipt Date: 20081218
  Transmission Date: 20090506
  Serious: Yes (Hospitalization)
  Sender: FDA-Public Use
  Company Number: None

PATIENT
  Age: 79 Year
  Sex: Female
  Weight: 57 kg

DRUGS (1)
  1. GEMCITABINE [Suspect]
     Indication: OVARIAN CANCER
     Dosage: 15000MG 3 WK ON, 1 WK OFF IV
     Route: 042
     Dates: start: 20080411, end: 20080621

REACTIONS (5)
  - ALVEOLITIS [None]
  - PERICARDIAL EFFUSION [None]
  - PLEURAL EFFUSION [None]
  - PNEUMONITIS [None]
  - RESPIRATORY ALKALOSIS [None]
